FAERS Safety Report 6015913-7 (Version None)
Quarter: 2008Q4

REPORT INFORMATION
  Report Type: 
  Country: None (occurrence: None)
  Receive Date: 20081222
  Receipt Date: 20081218
  Transmission Date: 20090506
  Serious: Yes (Other)
  Sender: FDA-Public Use
  Company Number: B0551527A

PATIENT
  Age: 85 Year
  Sex: Female

DRUGS (9)
  1. ZANTAC [Suspect]
     Dosage: 300MG PER DAY
     Route: 065
     Dates: start: 19971201
  2. ZYLORIC [Suspect]
     Dosage: 300MG PER DAY
     Route: 065
     Dates: start: 19971201
  3. ASPIRIN [Suspect]
     Dosage: 200MG PER DAY
     Route: 065
     Dates: start: 19971201
  4. FEROGRADUMET [Suspect]
     Route: 065
     Dates: start: 19971201
  5. ACETYLCYSTEINE [Suspect]
     Indication: COUGH
     Dosage: 600MG PER DAY
     Route: 048
     Dates: start: 20080216
  6. NITRADISC [Suspect]
     Dosage: 5MG PER DAY
     Route: 062
     Dates: start: 19971201
  7. SEGURIL [Suspect]
     Dosage: 10MG PER DAY
     Route: 048
     Dates: start: 19971201
  8. SEKISAN [Suspect]
     Indication: COUGH
     Dosage: 45ML PER DAY
     Route: 048
     Dates: start: 19980216
  9. ZOLPIDEM [Suspect]
     Indication: DRUG USE FOR UNKNOWN INDICATION
     Route: 048
     Dates: start: 19971201

REACTIONS (1)
  - STEVENS-JOHNSON SYNDROME [None]
